FAERS Safety Report 4632639-2 (Version None)
Quarter: 2005Q2

REPORT INFORMATION
  Report Type: 
  Country: None (occurrence: None)
  Receive Date: 20050331
  Receipt Date: 20040824
  Transmission Date: 20051028
  Serious: Yes (Hospitalization, Other)
  Sender: FDA-Public Use
  Company Number: 200414165BCC

PATIENT
  Sex: Female

DRUGS (2)
  1. ALEVE (CAPLET) [Suspect]
     Indication: BACK PAIN
     Dosage: 220-440 MG, PRN, ORAL
     Route: 048
  2. TRAZODONE HCL [Concomitant]

REACTIONS (7)
  - DIZZINESS [None]
  - DYSGEUSIA [None]
  - FAECES DISCOLOURED [None]
  - FATIGUE [None]
  - GASTRIC ULCER HAEMORRHAGE [None]
  - HAEMATOCHEZIA [None]
  - STOMACH DISCOMFORT [None]
